FAERS Safety Report 5034606-6 (Version None)
Quarter: 2006Q2

REPORT INFORMATION
  Report Type: 
  Country: None (occurrence: None)
  Receive Date: 20060621
  Receipt Date: 20060614
  Transmission Date: 20061013
  Serious: Yes (Death)
  Sender: FDA-Public Use
  Company Number: THQ2006A00518

PATIENT
  Sex: Male

DRUGS (7)
  1. ACTOS [Suspect]
     Dosage: 30 MG
  2. LANTUS [Concomitant]
  3. ACTRAPID                                     HUMAN (INSULIN HUMAN) [Concomitant]
  4. COVERSYL (PERINDOPRIL) [Concomitant]
  5. ANATENSOL [Concomitant]
  6. SIMVASTATIN [Concomitant]
  7. ISOSORBIDE MONONITRATE [Concomitant]

REACTIONS (1)
  - CARDIAC FAILURE [None]
